FAERS Safety Report 9032438 (Version 1)
Quarter: 2013Q1

REPORT INFORMATION
  Report Type: Spontaneous
  Country: US (occurrence: US)
  Receive Date: 20130125
  Receipt Date: 20130125
  Transmission Date: 20140127
  Serious: Yes (Hospitalization)
  Sender: FDA-Public Use
  Company Number: US-GLAXOSMITHKLINE-A0833399A

PATIENT
  Sex: Female
  Weight: 95.5 kg

DRUGS (4)
  1. AVANDIA [Suspect]
     Indication: DIABETES MELLITUS
     Dosage: 4MG PER DAY
     Route: 048
     Dates: start: 2000, end: 2003
  2. TARKA [Concomitant]
  3. PRAVACHOL [Concomitant]
  4. ESTROGEN [Concomitant]

REACTIONS (7)
  - Intracardiac thrombus [Unknown]
  - Cardiovascular disorder [Unknown]
  - Cardiomyopathy [Unknown]
  - Hypertension [Unknown]
  - Cardiac failure congestive [Unknown]
  - Pulmonary oedema [Unknown]
  - Coronary artery disease [Unknown]
